FAERS Safety Report 6812236-0 (Version None)
Quarter: 2010Q3

REPORT INFORMATION
  Report Type: 
  Country: None (occurrence: None)
  Receive Date: 20100701
  Receipt Date: 20100622
  Transmission Date: 20110219
  Serious: Yes (Hospitalization)
  Sender: FDA-Public Use
  Company Number: FR-ASTRAZENECA-2010SE29518

PATIENT
  Age: 28733 Day
  Sex: Female

DRUGS (18)
  1. NAROPIN [Suspect]
     Route: 042
     Dates: start: 20100115, end: 20100115
  2. PROPOFOL [Suspect]
     Route: 050
     Dates: start: 20100115, end: 20100115
  3. SUFENTA PRESERVATIVE FREE [Suspect]
     Route: 042
     Dates: start: 20100115, end: 20100115
  4. ATRACURIUM HOSPIRA [Suspect]
     Route: 042
     Dates: start: 20100115, end: 20100115
  5. AUGMENTIN '125' [Suspect]
     Route: 042
     Dates: start: 20100115, end: 20100115
  6. SUPRANE [Suspect]
     Route: 055
     Dates: start: 20100115, end: 20100115
  7. BETADINE [Suspect]
     Route: 003
     Dates: start: 20100114, end: 20100115
  8. BETADINE [Suspect]
     Route: 067
     Dates: start: 20100115, end: 20100115
  9. NORMACOL [Suspect]
     Route: 054
     Dates: start: 20100114, end: 20100114
  10. PERFALGAN [Suspect]
     Route: 042
     Dates: start: 20100115, end: 20100117
  11. ACUPAN [Suspect]
     Route: 042
     Dates: start: 20100115, end: 20100117
  12. DROPERIDOL [Suspect]
     Route: 042
     Dates: start: 20100115, end: 20100115
  13. EPHEDRINE [Suspect]
     Route: 042
     Dates: start: 20100115, end: 20100115
  14. ATROPINE [Suspect]
     Route: 042
     Dates: start: 20100115, end: 20100115
  15. INDAPAMIDE [Concomitant]
  16. LIPANOR [Concomitant]
  17. ARTOTEC [Concomitant]
  18. NEURONTIN [Concomitant]
     Dates: start: 20100114, end: 20100115

REACTIONS (2)
  - OLIGURIA [None]
  - RENAL FAILURE ACUTE [None]
